FAERS Safety Report 7496396-7 (Version None)
Quarter: 2011Q2

REPORT INFORMATION
  Report Type: 
  Country: None (occurrence: None)
  Receive Date: 20110523
  Receipt Date: 20110510
  Transmission Date: 20111010
  Serious: Yes (Hospitalization)
  Sender: FDA-Public Use
  Company Number: JP-PFIZER INC-2011093918

PATIENT
  Age: 82 Year
  Sex: Female

DRUGS (1)
  1. CELECOXIB [Suspect]
     Dosage: UNKNOWN
     Route: 048

REACTIONS (1)
  - ARRHYTHMIA [None]
